FAERS Safety Report 5041376-4 (Version None)
Quarter: 2006Q2

REPORT INFORMATION
  Report Type: 
  Country: None (occurrence: None)
  Receive Date: 20060622
  Receipt Date: 20060609
  Transmission Date: 20061013
  Serious: Yes (Death, Other)
  Sender: FDA-Public Use
  Company Number: 2006022566

PATIENT
  Sex: Female

DRUGS (4)
  1. NEURONTIN [Suspect]
     Indication: CONVULSION
     Dosage: 5400 MG (1 D), ORAL
     Route: 048
  2. LORAZEPAM [Suspect]
     Indication: CONVULSION
     Dosage: 1 MG (1 D), ORAL
     Route: 048
  3. ULTRAM [Suspect]
     Indication: PAIN
     Dosage: UP TO 8 TABLETS (50 MG, 1 D), ORAL
     Route: 048
  4. ULTRAM [Suspect]
     Indication: PROCEDURAL PAIN
     Dosage: UP TO 8 TABLETS (50 MG, 1 D), ORAL
     Route: 048

REACTIONS (19)
  - ANXIETY [None]
  - AORTIC INJURY [None]
  - CARDIAC PERFORATION [None]
  - CLAVICLE FRACTURE [None]
  - COMPLETED SUICIDE [None]
  - CONVULSION [None]
  - DRUG INEFFECTIVE [None]
  - DRUG WITHDRAWAL CONVULSIONS [None]
  - GRAND MAL CONVULSION [None]
  - GUN SHOT WOUND [None]
  - HAEMOTHORAX [None]
  - HEPATIC TRAUMA [None]
  - OESOPHAGEAL PERFORATION [None]
  - PERITONEAL HAEMORRHAGE [None]
  - PROCEDURAL PAIN [None]
  - RETROPERITONEAL HAEMORRHAGE [None]
  - RIB FRACTURE [None]
  - THORACIC VERTEBRAL FRACTURE [None]
  - TREATMENT NONCOMPLIANCE [None]
